FAERS Safety Report 15426034 (Version 1)
Quarter: 2018Q3

REPORT INFORMATION
  Report Type: Spontaneous
  Country: US (occurrence: US)
  Receive Date: 20180925
  Receipt Date: 20180925
  Transmission Date: 20181010
  Serious: Yes (Hospitalization)
  Sender: FDA-Public Use
  Company Number: US-ELI_LILLY_AND_COMPANY-US201809007567

PATIENT
  Age: 81 Year
  Sex: Female

DRUGS (2)
  1. LANTUS [Concomitant]
     Active Substance: INSULIN GLARGINE
     Indication: TYPE 2 DIABETES MELLITUS
     Dosage: 24 U, DAILY
  2. HUMALOG [Suspect]
     Active Substance: INSULIN LISPRO
     Indication: TYPE 2 DIABETES MELLITUS
     Dosage: 5 U, TID WITH SLIDING SCALE
     Route: 058

REACTIONS (7)
  - Vocal cord disorder [Unknown]
  - Cough [Unknown]
  - Cerebral haemorrhage [Unknown]
  - Fall [Unknown]
  - Dysphonia [Unknown]
  - Pharyngeal injury [Unknown]
  - Coma [Unknown]

NARRATIVE: CASE EVENT DATE: 201708
